FAERS Safety Report 6644137-5 (Version None)
Quarter: 2010Q1

REPORT INFORMATION
  Report Type: 
  Country: None (occurrence: None)
  Receive Date: 20100322
  Receipt Date: 20100315
  Transmission Date: 20100710
  Serious: Yes (Hospitalization, Other)
  Sender: FDA-Public Use
  Company Number: PHHY2009DE40366

PATIENT
  Sex: Female

DRUGS (4)
  1. RASILEZ [Suspect]
     Dosage: 300 MG PER DAY
     Dates: start: 20090101
  2. ENALAPRIL MALEATE [Concomitant]
  3. ESIDRIX [Concomitant]
  4. CYNT [Concomitant]

REACTIONS (2)
  - HYPERTENSIVE CRISIS [None]
  - RENIN INCREASED [None]
